FAERS Safety Report 7045896-2 (Version None)
Quarter: 2010Q4

REPORT INFORMATION
  Report Type: 
  Country: None (occurrence: None)
  Receive Date: 20101014
  Receipt Date: 20101006
  Transmission Date: 20110411
  Serious: Yes (Other)
  Sender: FDA-Public Use
  Company Number: US-NAPPMUNDI-USA-2010-0048872

PATIENT
  Sex: Female

DRUGS (1)
  1. OXYCONTIN [Suspect]
     Indication: PAIN
     Dosage: UNK
     Dates: start: 20100901

REACTIONS (7)
  - AMNESIA [None]
  - DRUG HYPERSENSITIVITY [None]
  - GASTRIC HAEMORRHAGE [None]
  - GENERAL PHYSICAL HEALTH DETERIORATION [None]
  - INCONTINENCE [None]
  - OESOPHAGEAL HAEMORRHAGE [None]
  - VOMITING [None]
